FAERS Safety Report 12870930 (Version 3)
Quarter: 2018Q1

REPORT INFORMATION
  Report Type: Report from Study
  Country: US (occurrence: US)
  Receive Date: 20161020
  Receipt Date: 20180105
  Transmission Date: 20180508
  Serious: No
  Sender: FDA-Public Use
  Company Number: US-AMGEN-USASL2016138740

PATIENT
  Age: 77 Year
  Sex: Female

DRUGS (1)
  1. REPATHA [Suspect]
     Active Substance: EVOLOCUMAB
     Indication: BLOOD CHOLESTEROL ABNORMAL
     Dosage: 420 MG, UNK
     Route: 065
     Dates: start: 20161006

REACTIONS (5)
  - Injection site pain [Unknown]
  - Cataract [Not Recovered/Not Resolved]
  - Underdose [Unknown]
  - Cough [Unknown]
  - Pain in extremity [Not Recovered/Not Resolved]
